FAERS Safety Report 5757202-1 (Version None)
Quarter: 2008Q2

REPORT INFORMATION
  Report Type: 
  Country: None (occurrence: None)
  Receive Date: 20080603
  Receipt Date: 20080530
  Transmission Date: 20081010
  Serious: Yes (Hospitalization)
  Sender: FDA-Public Use
  Company Number: JP-BRISTOL-MYERS SQUIBB COMPANY-14207526

PATIENT
  Age: 68 Year
  Sex: Male

DRUGS (13)
  1. ABATACEPT [Suspect]
     Indication: RHEUMATOID ARTHRITIS
     Route: 041
     Dates: start: 20070502
  2. PREDONINE [Suspect]
     Route: 048
     Dates: start: 20080307
  3. DICLOFENAC SODIUM [Concomitant]
     Indication: RHEUMATOID ARTHRITIS
     Dates: start: 20080306
  4. ALPHACALCIDOL [Concomitant]
     Indication: OSTEOPOROSIS
     Route: 048
  5. FAMOTIDINE [Concomitant]
     Indication: GASTRITIS PROPHYLAXIS
     Route: 048
  6. ISCOTIN [Concomitant]
     Indication: ANTIBIOTIC PROPHYLAXIS
     Route: 048
  7. PYDOXAL [Concomitant]
     Indication: NEUROPATHY PERIPHERAL
     Route: 048
  8. ADOFEED [Concomitant]
     Indication: RHEUMATOID ARTHRITIS
  9. POSTERISAN FORTE [Concomitant]
     Indication: HAEMORRHOIDS
  10. ZYRTEC [Concomitant]
     Indication: ECZEMA
     Route: 048
  11. RINDERON-VG [Concomitant]
     Indication: HAEMORRHOIDS
  12. POVIDONE IODINE [Concomitant]
     Indication: INFECTION PROPHYLAXIS
  13. EURAX [Concomitant]
     Indication: ECZEMA
     Dates: start: 20080509

REACTIONS (1)
  - CEREBRAL INFARCTION [None]
